FAERS Safety Report 7393028-3 (Version None)
Quarter: 2011Q2

REPORT INFORMATION
  Report Type: 
  Country: None (occurrence: None)
  Receive Date: 20110404
  Receipt Date: 20110325
  Transmission Date: 20111010
  Serious: Yes (Life-Threatening)
  Sender: FDA-Public Use
  Company Number: AT-AMGEN-AUTSP2011016798

PATIENT
  Age: 65 Year
  Sex: Female
  Weight: 60 kg

DRUGS (3)
  1. DIBONDRIN [Concomitant]
  2. VECTIBIX [Suspect]
     Indication: COLON CANCER
     Dosage: 360 MG, UNK
     Route: 042
  3. DEXAMETHASONE [Concomitant]

REACTIONS (3)
  - HYPERTENSION [None]
  - BACK PAIN [None]
  - FLUSHING [None]
